FAERS Safety Report 8499342-2 (Version None)
Quarter: 2012Q3

REPORT INFORMATION
  Report Type: 
  Country: None (occurrence: None)
  Receive Date: 20120710
  Receipt Date: 20120709
  Transmission Date: 20120928
  Serious: Yes (Hospitalization)
  Sender: FDA-Public Use
  Company Number: PHHY2012AU053629

PATIENT
  Sex: Male

DRUGS (3)
  1. ASENAPINE [Concomitant]
     Indication: PSYCHOTIC DISORDER
     Dosage: 10 MG, NOCTE
     Route: 048
     Dates: start: 20120511
  2. CLOZARIL [Suspect]
     Indication: SCHIZOAFFECTIVE DISORDER
     Dosage: 300 MG, 100 MG, MANE AND 200 MG NOCTE.
     Route: 048
     Dates: start: 20120531, end: 20120619
  3. OMEPRAZOLE [Concomitant]
     Indication: GASTROOESOPHAGEAL REFLUX DISEASE
     Dosage: 20 MG, MANE.
     Route: 048

REACTIONS (9)
  - PYREXIA [None]
  - OROPHARYNGEAL PAIN [None]
  - CONFUSIONAL STATE [None]
  - INFLUENZA LIKE ILLNESS [None]
  - DIZZINESS [None]
  - LIVER FUNCTION TEST ABNORMAL [None]
  - C-REACTIVE PROTEIN INCREASED [None]
  - COUGH [None]
  - LETHARGY [None]
